FAERS Safety Report 9193188 (Version 2)
Quarter: 2013Q2

REPORT INFORMATION
  Report Type: Spontaneous
  Country: US (occurrence: US)
  Receive Date: 20130327
  Receipt Date: 20130425
  Transmission Date: 20140414
  Serious: Yes (Death)
  Sender: FDA-Public Use
  Company Number: US-ACTELION-A-NJ2013-81297

PATIENT
  Age: 67 Year
  Sex: Female

DRUGS (3)
  1. VENTAVIS [Suspect]
     Indication: PULMONARY HYPERTENSION
     Dosage: 5 MCG, UNK
     Route: 055
     Dates: start: 2012, end: 201302
  2. SILDENAFIL [Concomitant]
  3. LETAIRIS [Concomitant]

REACTIONS (1)
  - Interstitial lung disease [Fatal]
